FAERS Safety Report 19833240 (Version 3)
Quarter: 2021Q4

REPORT INFORMATION
  Report Type: Report from Study
  Country: EG (occurrence: EG)
  Receive Date: 20210915
  Receipt Date: 20211213
  Transmission Date: 20220303
  Serious: Yes (Other)
  Sender: FDA-Public Use
  Company Number: EG-BAYER-2021-208109

PATIENT

DRUGS (7)
  1. EYLEA [Suspect]
     Active Substance: AFLIBERCEPT
     Indication: Diabetic retinal oedema
     Dosage: UNK, TOTAL NUMBER OF INJECTIONS: 9 (OD)
     Route: 031
     Dates: start: 201903
  2. GLUCOPHAGE XR [Concomitant]
     Active Substance: METFORMIN HYDROCHLORIDE
     Indication: Diabetes mellitus
     Dosage: 0.5 DF, BID
  3. GLUCOPHAGE XR [Concomitant]
     Active Substance: METFORMIN HYDROCHLORIDE
     Dosage: 1 TABLET IN THE MORNING AND 1 TABLET AT NIGHT
  4. COSOPT [Concomitant]
     Active Substance: DORZOLAMIDE HYDROCHLORIDE\TIMOLOL MALEATE
     Indication: Intraocular pressure test abnormal
     Dosage: UNK UNK, BID
     Route: 047
     Dates: start: 202105
  5. COSOPT [Concomitant]
     Active Substance: DORZOLAMIDE HYDROCHLORIDE\TIMOLOL MALEATE
     Dosage: 2 TIMES /DAY (IN THE MORNING-AT NIGHT)
     Dates: start: 202105
  6. BLINK [CHLOROBUTANOL;MACROGOL;MACROGOL STEARATE] [Concomitant]
     Indication: Eye lubrication therapy
     Dosage: UNK
     Dates: start: 202105
  7. BLINK TEARS [Concomitant]
     Active Substance: POLYETHYLENE GLYCOL 400
     Indication: Eye lubrication therapy
     Dosage: UNK
     Dates: start: 202105

REACTIONS (8)
  - Retinal vascular occlusion [Not Recovered/Not Resolved]
  - Eye laser surgery [Unknown]
  - Cataract operation [Unknown]
  - Retinal oedema [Recovering/Resolving]
  - Eyelid ptosis [Not Recovered/Not Resolved]
  - Intraocular pressure increased [Not Recovered/Not Resolved]
  - Headache [Not Recovered/Not Resolved]
  - Inappropriate schedule of product administration [Unknown]

NARRATIVE: CASE EVENT DATE: 20190101
